FAERS Safety Report 9644147 (Version 1)
Quarter: 2013Q4

REPORT INFORMATION
  Report Type: Spontaneous
  Country: US (occurrence: US)
  Receive Date: 20131024
  Receipt Date: 20131024
  Transmission Date: 20140711
  Serious: Yes (Hospitalization)
  Sender: FDA-Public Use
  Company Number: US-B.I. PHARMACEUTICALS,INC./RIDGEFIELD-2013-BI-33544BP

PATIENT
  Age: 47 Year
  Sex: Male
  Weight: 106 kg

DRUGS (11)
  1. PRADAXA [Suspect]
     Indication: ATRIAL FIBRILLATION
     Dosage: 300 MG
     Route: 048
     Dates: start: 201308, end: 20131010
  2. COZAAR [Concomitant]
     Indication: CARDIOMYOPATHY
     Dosage: 100 MG
  3. LASIX [Concomitant]
     Indication: CARDIOMYOPATHY
     Dosage: 80 MG
  4. VITAMIN B12 [Concomitant]
     Indication: MALABSORPTION
     Dosage: 1 ANZ
     Route: 048
  5. MULTIVITAMINS [Concomitant]
     Indication: MALABSORPTION
     Dosage: 3 ANZ
     Route: 048
  6. CALCIUM CITRATE [Concomitant]
     Indication: MALABSORPTION
     Dosage: 950 MG
  7. METOPROLOL TARTRATE [Concomitant]
     Indication: ATRIAL FIBRILLATION
     Dosage: 100 MG
  8. METOPROLOL TARTRATE [Concomitant]
     Indication: CARDIOMYOPATHY
  9. AMIODARONE [Concomitant]
     Indication: ATRIAL FIBRILLATION
     Dosage: 400 MG
  10. SPIRONOLACTONE [Concomitant]
     Indication: CARDIOMYOPATHY
     Dosage: 25 MG
  11. VITAMIN E [Concomitant]
     Indication: MALABSORPTION
     Dosage: 400 U

REACTIONS (2)
  - Cerebrovascular accident [Recovered/Resolved with Sequelae]
  - Ejection fraction abnormal [Not Recovered/Not Resolved]
